FAERS Safety Report 19876938 (Version 1)
Quarter: 2021Q3

REPORT INFORMATION
  Report Type: Spontaneous
  Country: US (occurrence: US)
  Receive Date: 20210923
  Receipt Date: 20210923
  Transmission Date: 20211014
  Serious: Yes (Other)
  Sender: FDA-Public Use
  Company Number: US-GLAXOSMITHKLINE-USCH2021AMR065497

PATIENT
  Sex: Female

DRUGS (1)
  1. NICODERM CQ [Suspect]
     Active Substance: NICOTINE
     Indication: PRODUCT USED FOR UNKNOWN INDICATION
     Dosage: 1 DF, QD (1 PATCH DAILY)

REACTIONS (6)
  - Poor peripheral circulation [Unknown]
  - Tobacco poisoning [Unknown]
  - Joint swelling [Unknown]
  - Neuropathy peripheral [Unknown]
  - Cataract [Unknown]
  - Peripheral swelling [Unknown]
